FAERS Safety Report 13140759 (Version 1)
Quarter: 2017Q1

REPORT INFORMATION
  Report Type: Spontaneous
  Country: NL (occurrence: NL)
  Receive Date: 20170123
  Receipt Date: 20170123
  Transmission Date: 20170428
  Serious: Yes (Hospitalization, Disabling, Other)
  Sender: FDA-Public Use
  Company Number: NL-TEVA-732156ACC

PATIENT
  Age: 55 Year
  Sex: Female

DRUGS (3)
  1. HYDROXYCHLOROQUINE DRAGEE 200MG [Concomitant]
     Active Substance: HYDROXYCHLOROQUINE
     Dosage: 400 MILLIGRAM DAILY; 2 TIMES DAILY
     Route: 048
     Dates: start: 20121203, end: 20130423
  2. METHOTREXATE. [Suspect]
     Active Substance: METHOTREXATE
     Indication: RHEUMATOID ARTHRITIS
     Dosage: 15MG, 1 TIME PER WEEK FROM 16-JUN-2014 TILL 07-JUL-2015 7,5 MG PER WEEK
     Route: 048
     Dates: start: 20130913
  3. FOLIC ACID. [Suspect]
     Active Substance: FOLIC ACID
     Indication: RHEUMATOID ARTHRITIS
     Dosage: 5MG 1 TIME PER WEEK
     Route: 048
     Dates: start: 20130913

REACTIONS (1)
  - Liposarcoma [Unknown]

NARRATIVE: CASE EVENT DATE: 20161127
